FAERS Safety Report 6588072-X (Version None)
Quarter: 2010Q1

REPORT INFORMATION
  Report Type: 
  Country: None (occurrence: None)
  Receive Date: 20100218
  Receipt Date: 20100208
  Transmission Date: 20100710
  Serious: Yes (Hospitalization, Other)
  Sender: FDA-Public Use
  Company Number: PHEH2007US03035

PATIENT
  Sex: Male

DRUGS (45)
  1. ZOMETA [Suspect]
     Indication: MULTIPLE MYELOMA
     Dosage: UNK
  2. AREDIA [Suspect]
     Indication: MULTIPLE MYELOMA
     Dosage: 90 MG, Q 3 MONTHS
     Dates: start: 20071114
  3. PREDNISONE [Concomitant]
  4. ADVAIR DISKUS 100/50 [Concomitant]
     Dosage: UNK
  5. ALBUTEROL [Concomitant]
  6. BUTALBITAL COMPOUND [Concomitant]
  7. CHLORHEXIDINE GLUCONATE [Concomitant]
  8. CYMBALTA [Concomitant]
  9. DIAZEPAM [Concomitant]
  10. GABAPENTIN [Concomitant]
  11. ACETAMINOPHEN AND HYDROCODONE BITARTRATE [Concomitant]
  12. LORAZEPAM [Concomitant]
  13. METOPROLOL TARTRATE [Concomitant]
  14. NORTRIPTYLINE HCL [Concomitant]
  15. PAXIL [Concomitant]
  16. PRILOSEC [Concomitant]
  17. PROCHLORPERAZINE [Concomitant]
  18. SPIRIVA [Concomitant]
  19. TETRACYCLINE [Concomitant]
     Dosage: 250 MG, UNK
     Route: 048
  20. DILAUDID [Concomitant]
  21. NEXIUM [Concomitant]
     Dosage: 40 MG, DAILY
  22. DEXAMETHASONE [Concomitant]
  23. VALIUM [Concomitant]
     Dosage: 5 MG, UNK
  24. FIORICET [Concomitant]
  25. COMPAZINE [Concomitant]
     Indication: NAUSEA
     Dosage: UNK
  26. PENICILLIN ^GRUNENTHAL^ [Concomitant]
  27. FLAGYL [Concomitant]
  28. MEXILETINE HYDROCHLORIDE [Concomitant]
     Dosage: 150 MG, BID
  29. NORTRIPTYLINE HCL [Concomitant]
     Dosage: 25 MG, UNK
  30. VICODIN [Concomitant]
     Dosage: 10/325 MG, Q3H PRN
  31. HYDROMORPHONE HYDROCHLORIDE [Concomitant]
     Dosage: 4 MG, UNK
  32. SPIRIVA [Concomitant]
  33. ADVAIR DISKUS 100/50 [Concomitant]
  34. ATIVAN [Concomitant]
  35. CHANTIX [Concomitant]
  36. PULMICORT [Concomitant]
  37. ALBUTEROL [Concomitant]
  38. LYRICA [Concomitant]
     Dosage: 75 MG, UNK
  39. XYLOCAINE [Concomitant]
     Indication: ORAL PAIN
  40. DECADRON                                /CAN/ [Concomitant]
     Dosage: UNK
  41. VELCADE [Concomitant]
     Dosage: 2.7 MG, 21 DAY CYCLE
  42. OXYCODONE HCL [Concomitant]
  43. AUGMENTIN                               /SCH/ [Concomitant]
     Indication: COUGH
  44. CYMBALTA [Concomitant]
     Indication: DEPRESSION
  45. ALDACTAZINE [Concomitant]
     Indication: OEDEMA

REACTIONS (58)
  - ANXIETY [None]
  - ARTHRITIS [None]
  - ATELECTASIS [None]
  - BACK PAIN [None]
  - BONE DENSITY DECREASED [None]
  - BONE DISORDER [None]
  - BONE EROSION [None]
  - BRONCHITIS [None]
  - CEREBRAL ATROPHY [None]
  - CHRONIC OBSTRUCTIVE PULMONARY DISEASE [None]
  - COLONIC POLYP [None]
  - CORONARY ARTERY DISEASE [None]
  - DEAFNESS [None]
  - DECREASED APPETITE [None]
  - DECREASED INTEREST [None]
  - DEFORMITY [None]
  - DEPRESSION [None]
  - DISCOMFORT [None]
  - DYSGEUSIA [None]
  - DYSPNOEA [None]
  - EMOTIONAL DISTRESS [None]
  - EMPHYSEMA [None]
  - EMPYEMA [None]
  - ENCEPHALOPATHY [None]
  - GASTRIC HAEMORRHAGE [None]
  - GENERAL PHYSICAL HEALTH DETERIORATION [None]
  - HALLUCINATION [None]
  - HEPATIC CYST [None]
  - HYPOAESTHESIA [None]
  - HYPOPHAGIA [None]
  - IMPAIRED HEALING [None]
  - INSOMNIA [None]
  - LIFE EXPECTANCY SHORTENED [None]
  - MIGRAINE [None]
  - NAUSEA [None]
  - NEUROPATHY PERIPHERAL [None]
  - OEDEMA [None]
  - ORAL PAIN [None]
  - OSTEOARTHRITIS [None]
  - OSTEONECROSIS [None]
  - PAIN [None]
  - PAIN IN JAW [None]
  - PLEURAL EFFUSION [None]
  - PNEUMONIA [None]
  - POLYNEUROPATHY [None]
  - SEPSIS [None]
  - SINUS DISORDER [None]
  - SINUS TACHYCARDIA [None]
  - SINUSITIS [None]
  - SWELLING FACE [None]
  - THROMBOCYTOSIS [None]
  - TOOTH EXTRACTION [None]
  - TOOTHACHE [None]
  - TREMOR [None]
  - UPPER RESPIRATORY TRACT INFECTION [None]
  - VERTIGO [None]
  - VOMITING [None]
  - WEIGHT DECREASED [None]
